FAERS Safety Report 11809218 (Version 1)
Quarter: 2015Q4

REPORT INFORMATION
  Report Type: Spontaneous
  Country: US (occurrence: US)
  Receive Date: 20151207
  Receipt Date: 20151207
  Transmission Date: 20160305
  Serious: No
  Sender: FDA-Public Use
  Company Number: US-009507513-1512USA002942

PATIENT
  Age: 67 Year
  Sex: Female

DRUGS (4)
  1. CETUXIMAB [Concomitant]
     Active Substance: CETUXIMAB
  2. DOCETAXEL. [Concomitant]
     Active Substance: DOCETAXEL
  3. KEYTRUDA [Suspect]
     Active Substance: PEMBROLIZUMAB
  4. CISPLATIN. [Concomitant]
     Active Substance: CISPLATIN

REACTIONS (7)
  - Acne [Unknown]
  - Pruritus [Unknown]
  - Sputum abnormal [Unknown]
  - Haemoptysis [Unknown]
  - Papule [Unknown]
  - Nodule [Unknown]
  - Diarrhoea [Unknown]

NARRATIVE: CASE EVENT DATE: 20151126
